FAERS Safety Report 4533951-8 (Version None)
Quarter: 2004Q4

REPORT INFORMATION
  Report Type: 
  Country: None (occurrence: None)
  Receive Date: 20041221
  Receipt Date: 20041217
  Transmission Date: 20050328
  Serious: Yes (Death)
  Sender: FDA-Public Use
  Company Number: 04-12-1762

PATIENT
  Age: 71 Year
  Sex: Male

DRUGS (2)
  1. CLOZAPINE [Suspect]
     Indication: DEMENTIA
     Dosage: 15-200 MG QD ORAL
     Route: 048
     Dates: start: 20020101, end: 20041001
  2. CLOZAPINE [Suspect]
     Indication: DEPRESSION
     Dosage: 15-200 MG QD ORAL
     Route: 048
     Dates: start: 20020101, end: 20041001

REACTIONS (1)
  - PNEUMONIA [None]
